FAERS Safety Report 6011961-1 (Version None)
Quarter: 2008Q4

REPORT INFORMATION
  Report Type: 
  Country: None (occurrence: None)
  Receive Date: 20081218
  Receipt Date: 20081015
  Transmission Date: 20090506
  Serious: Yes (Other)
  Sender: FDA-Public Use
  Company Number: US-ASTRAZENECA-2008UW22620

PATIENT
  Age: 74 Year
  Sex: Male
  Weight: 88 kg

DRUGS (5)
  1. CRESTOR [Suspect]
     Indication: BLOOD CHOLESTEROL INCREASED
     Route: 048
     Dates: start: 20080901
  2. ROBAXIN [Concomitant]
  3. TYLENOL W/ CODEINE [Concomitant]
  4. LYRICA [Concomitant]
  5. GLYOBRIDE [Concomitant]

REACTIONS (1)
  - AMNESIA [None]
